FAERS Safety Report 9881027 (Version 1)
Quarter: 2014Q1

REPORT INFORMATION
  Report Type: Spontaneous
  Country: DE (occurrence: None)
  Receive Date: 20140205
  Receipt Date: 20140205
  Transmission Date: 20141002
  Serious: Yes (Death)
  Sender: FDA-Public Use
  Company Number: 2014SA011729

PATIENT
  Age: 73 Year
  Sex: Male

DRUGS (3)
  1. DIAZEPAM [Suspect]
     Indication: COMPLETED SUICIDE
  2. DIPHENHYDRAMINE [Suspect]
     Indication: COMPLETED SUICIDE
     Route: 048
  3. DOXYLAMINE [Suspect]
     Indication: COMPLETED SUICIDE
     Route: 048

REACTIONS (3)
  - Completed suicide [None]
  - Toxicity to various agents [None]
  - Intentional overdose [None]
